FAERS Safety Report 23936069 (Version 1)
Quarter: 2024Q2

REPORT INFORMATION
  Report Type: Spontaneous
  Country: RO (occurrence: RO)
  Receive Date: 20240604
  Receipt Date: 20240604
  Transmission Date: 20240716
  Serious: Yes (Life-Threatening)
  Sender: FDA-Public Use
  Company Number: None

PATIENT
  Age: 19 Year
  Sex: Female

DRUGS (2)
  1. QUETIAPINE [Suspect]
     Active Substance: QUETIAPINE
     Indication: Anxiety
     Dosage: 1 TABLET/DAY, BEFORE BEDTIME, QUETIAPINE TEVA
     Route: 065
     Dates: start: 20240302
  2. ARIPIPRAZOLE [Suspect]
     Active Substance: ARIPIPRAZOLE
     Indication: Anxiety
     Dosage: 1 TABLET/DAY, IN THE MORNING
     Route: 065
     Dates: start: 20240302, end: 20240303

REACTIONS (8)
  - Hiccups [Recovering/Resolving]
  - Muscle strain [Not Recovered/Not Resolved]
  - Suffocation feeling [Recovering/Resolving]
  - Dizziness [Unknown]
  - Somnolence [Unknown]
  - Muscle contractions involuntary [Not Recovered/Not Resolved]
  - Headache [Unknown]
  - Nightmare [Recovered/Resolved with Sequelae]

NARRATIVE: CASE EVENT DATE: 20240302
